FAERS Safety Report 6186701-6 (Version None)
Quarter: 2009Q2

REPORT INFORMATION
  Report Type: 
  Country: None (occurrence: None)
  Receive Date: 20090512
  Receipt Date: 20090508
  Transmission Date: 20091009
  Serious: Yes (Other)
  Sender: FDA-Public Use
  Company Number: JP-JNJFOC-20090406093

PATIENT
  Age: 42 Year
  Sex: Female
  Weight: 69 kg

DRUGS (15)
  1. RISPERDAL [Suspect]
     Indication: DRUG USE FOR UNKNOWN INDICATION
     Route: 048
  2. SERENASE [Interacting]
     Indication: DRUG USE FOR UNKNOWN INDICATION
     Route: 048
  3. SERENASE [Interacting]
     Route: 041
  4. ABILIFY [Interacting]
     Indication: DRUG USE FOR UNKNOWN INDICATION
     Route: 048
  5. LEVOTOMIN [Concomitant]
     Dosage: AS NEEDED
     Route: 048
  6. LEVOTOMIN [Concomitant]
     Dosage: AS NEEDED
     Route: 048
  7. LEVOTOMIN [Concomitant]
     Route: 048
  8. NORVASC [Concomitant]
     Route: 048
  9. LAXOBERON [Concomitant]
     Route: 048
  10. NELBON [Concomitant]
     Route: 048
  11. PHYSIO 35 [Concomitant]
  12. VEEN-D [Concomitant]
     Route: 065
  13. VITAMEDIN [Concomitant]
     Route: 065
  14. UNASYN [Concomitant]
     Route: 065
  15. BROTIZOLAM [Concomitant]
     Route: 048

REACTIONS (2)
  - DRUG INTERACTION [None]
  - NEUROLEPTIC MALIGNANT SYNDROME [None]
